FAERS Safety Report 5873362-6 (Version None)
Quarter: 2008Q3

REPORT INFORMATION
  Report Type: 
  Country: None (occurrence: None)
  Receive Date: 20080908
  Receipt Date: 20080902
  Transmission Date: 20090109
  Serious: Yes (Death)
  Sender: FDA-Public Use
  Company Number: JP-NOVOPROD-279090

PATIENT
  Age: 39 Year
  Sex: Male
  Weight: 60 kg

DRUGS (1)
  1. NOVOSEVEN [Suspect]
     Indication: HAEMORRHAGE
     Dosage: 4.8 MG X 2
     Route: 042
     Dates: start: 20080801, end: 20080801

REACTIONS (1)
  - SEPSIS [None]
